FAERS Safety Report 25120979 (Version 2)
Quarter: 2025Q2

REPORT INFORMATION
  Report Type: Spontaneous
  Country: US (occurrence: US)
  Receive Date: 20250326
  Receipt Date: 20250507
  Transmission Date: 20250716
  Serious: Yes (Other)
  Sender: TAKEDA
  Company Number: US-TAKEDA-2025TUS029004

PATIENT
  Sex: Female
  Weight: 51 kg

DRUGS (7)
  1. VYVANSE [Suspect]
     Active Substance: LISDEXAMFETAMINE DIMESYLATE
     Indication: Attention deficit hyperactivity disorder
     Dosage: UNK, QD
     Dates: start: 20211208, end: 20211230
  2. VYVANSE [Suspect]
     Active Substance: LISDEXAMFETAMINE DIMESYLATE
     Dosage: 10 MILLIGRAM, QD
     Dates: start: 2022, end: 2022
  3. ZOLOFT [Concomitant]
     Active Substance: SERTRALINE HYDROCHLORIDE
  4. DUPIXENT [Concomitant]
     Active Substance: DUPILUMAB
  5. ZYRTEC [Concomitant]
     Active Substance: CETIRIZINE HYDROCHLORIDE
  6. PEPCID [Concomitant]
     Active Substance: FAMOTIDINE
  7. CROMOLYN SODIUM [Concomitant]
     Active Substance: CROMOLYN SODIUM

REACTIONS (6)
  - Anaphylactic shock [Unknown]
  - Food allergy [Unknown]
  - COVID-19 [Unknown]
  - Influenza [Unknown]
  - Arthropod bite [Unknown]
  - Dry mouth [Recovered/Resolved]
